FAERS Safety Report 24888984 (Version 1)
Quarter: 2025Q1

REPORT INFORMATION
  Report Type: Spontaneous
  Country: US (occurrence: None)
  Receive Date: 20250124
  Receipt Date: 20250124
  Transmission Date: 20250409
  Serious: Yes (Other)
  Sender: FDA-CTU
  Company Number: None

PATIENT
  Age: 67 Year
  Sex: Female
  Weight: 59.6 kg

DRUGS (3)
  1. DURVALUMAB [Suspect]
     Active Substance: DURVALUMAB
  2. CISPLATIN [Suspect]
     Active Substance: CISPLATIN
  3. GEMCITABINE [Suspect]
     Active Substance: GEMCITABINE

REACTIONS (6)
  - Hypotension [None]
  - Metabolic encephalopathy [None]
  - Acute kidney injury [None]
  - Leukocytosis [None]
  - Septic shock [None]
  - Intestinal perforation [None]

NARRATIVE: CASE EVENT DATE: 20250121
